FAERS Safety Report 24433084 (Version 1)
Quarter: 2024Q4

REPORT INFORMATION
  Report Type: Spontaneous
  Country: PL (occurrence: PL)
  Receive Date: 20241014
  Receipt Date: 20241014
  Transmission Date: 20250114
  Serious: Yes (Life-Threatening, Hospitalization, Other)
  Sender: MYLAN
  Company Number: None

PATIENT
  Age: 17 Year
  Sex: Female
  Weight: 49 kg

DRUGS (1)
  1. ALPRAZOLAM [Suspect]
     Active Substance: ALPRAZOLAM
     Indication: Product used for unknown indication
     Dosage: 20 DOSAGE FORM (DOSE: 20 TABLETS PER 0.5 MG)
     Route: 048
     Dates: start: 20220308, end: 20220308

REACTIONS (4)
  - Toxicity to various agents [Recovered/Resolved]
  - Loss of consciousness [Recovered/Resolved]
  - Suicide attempt [Recovered/Resolved]
  - Drug abuse [Unknown]

NARRATIVE: CASE EVENT DATE: 20220308
